FAERS Safety Report 7764214-5 (Version None)
Quarter: 2011Q3

REPORT INFORMATION
  Report Type: 
  Country: None (occurrence: None)
  Receive Date: 20110916
  Receipt Date: 20110908
  Transmission Date: 20111222
  Serious: Yes (Other)
  Sender: FDA-Public Use
  Company Number: GER/UKI/11/0021100

PATIENT
  Age: 21 Year
  Sex: Female

DRUGS (1)
  1. LAMOTRIGINE [Suspect]
     Indication: IDIOPATHIC GENERALISED EPILEPSY
     Dosage: 100, ORAL; 150, ORAL

REACTIONS (3)
  - DRUG INEFFECTIVE [None]
  - CONVULSION [None]
  - CONDITION AGGRAVATED [None]
